FAERS Safety Report 26077974 (Version 1)
Quarter: 2025Q4

REPORT INFORMATION
  Report Type: Spontaneous
  Country: US (occurrence: US)
  Receive Date: 20251122
  Receipt Date: 20251122
  Transmission Date: 20260118
  Serious: Yes (Other)
  Sender: MDD OPERATIONS
  Company Number: US-MDD US Operations-MDD202508-003235

PATIENT
  Age: 71 Year
  Sex: Female

DRUGS (7)
  1. ONAPGO [Suspect]
     Active Substance: APOMORPHINE HYDROCHLORIDE
     Indication: Parkinson^s disease
     Dosage: 1 MG PER HOUR FOR 16 HOURS DAILY
     Dates: start: 20250818
  2. ONAPGO [Suspect]
     Active Substance: APOMORPHINE HYDROCHLORIDE
     Indication: Dyskinesia
     Dosage: 1 CARTRIDGE FOR 16 HOURS OR LESS EACH DAY CONTINUOUS DOSE (MAXIMUM 6MG PER HOUR OR 98MG PER DAY) AND
     Route: 058
     Dates: start: 202508
  3. ONAPGO [Suspect]
     Active Substance: APOMORPHINE HYDROCHLORIDE
     Indication: On and off phenomenon
     Dosage: UPTO 3 ML
  4. ONAPGO [Suspect]
     Active Substance: APOMORPHINE HYDROCHLORIDE
     Dosage: 98MG EACH DAY
     Dates: start: 202508
  5. ONAPGO [Suspect]
     Active Substance: APOMORPHINE HYDROCHLORIDE
     Dosage: FOR UP TO 16 HOURS DAILY
  6. ONAPGO [Suspect]
     Active Substance: APOMORPHINE HYDROCHLORIDE
     Dosage: 1 CARTRIDGE (MAX 6MG/HR OR 98MG/DAY) AND EXTRA DOSES (MAX 3 PER DAY) FOR 16 HOURS OR LESS EACH DAY
     Dates: start: 202508
  7. CARBIDOPA\LEVODOPA [Concomitant]
     Active Substance: CARBIDOPA\LEVODOPA
     Dosage: NOT PROVIDED

REACTIONS (8)
  - Hallucination [Unknown]
  - On and off phenomenon [Unknown]
  - Infusion site erythema [Not Recovered/Not Resolved]
  - Infusion site swelling [Not Recovered/Not Resolved]
  - Infusion site irritation [Not Recovered/Not Resolved]
  - Dyskinesia [Recovering/Resolving]
  - Infusion site reaction [Unknown]
  - Product dose omission in error [Unknown]

NARRATIVE: CASE EVENT DATE: 20250829
